FAERS Safety Report 8077033-X (Version None)
Quarter: 2012Q1

REPORT INFORMATION
  Report Type: 
  Country: None (occurrence: None)
  Receive Date: 20120127
  Receipt Date: 20120120
  Transmission Date: 20120608
  Serious: Yes (Life-Threatening, Hospitalization, Other)
  Sender: FDA-Public Use
  Company Number: PHHO2010PL14730

PATIENT
  Sex: Male
  Weight: 96 kg

DRUGS (21)
  1. ALISKIREN [Suspect]
     Indication: CARDIAC FAILURE
     Dosage: UNK
     Route: 048
     Dates: start: 20100401, end: 20100428
  2. POTASSIUM CHLORIDE [Suspect]
     Dosage: UNK
     Dates: start: 20110429
  3. CARVEDILOL [Concomitant]
  4. FUROSEMIDE [Concomitant]
     Indication: CARDIAC FAILURE CHRONIC
     Dosage: 40 MG, QD
     Route: 048
     Dates: start: 20110629, end: 20111231
  5. ISOSORBIDE MONONITRATE [Concomitant]
     Indication: ANGINA PECTORIS
     Dosage: 60 MG, QD
     Route: 048
     Dates: start: 20110629, end: 20120113
  6. AMIODARONE HCL [Concomitant]
     Indication: ATRIAL FIBRILLATION
     Dosage: 200 MG, QD
     Route: 048
     Dates: start: 20101015, end: 20120113
  7. THEOPHYLLINE [Concomitant]
  8. ATORVASTATIN [Concomitant]
  9. BLINDED ALISKIREN [Suspect]
     Dosage: CODE NOT BROKEN
     Route: 048
     Dates: start: 20110831, end: 20120103
  10. BLINDED NO TREATMENT RECEIVED [Suspect]
     Dosage: CODE NOT BROKEN
     Route: 048
     Dates: start: 20110831, end: 20120103
  11. SIMVASTATIN [Concomitant]
     Indication: ANGINA PECTORIS
     Dosage: 20 MG, QD
     Route: 048
     Dates: start: 20110625, end: 20120113
  12. TRIMETAZIDINE [Concomitant]
     Indication: ANGINA PECTORIS
     Dosage: 20 MG, BID
     Route: 048
     Dates: start: 20110629, end: 20111231
  13. ENALAPRIL MALEATE [Suspect]
     Indication: CARDIAC FAILURE
     Dosage: CODE NOT BROKEN
     Route: 048
     Dates: start: 20100429, end: 20100918
  14. ENALAPRIL MALEATE [Suspect]
     Indication: CARDIAC FAILURE
     Dosage: 10 MG, BID
     Route: 048
     Dates: start: 20100305, end: 20100331
  15. BLINDED ALISKIREN [Suspect]
     Indication: CARDIAC FAILURE
     Dosage: CODE NOT BROKEN
     Route: 048
     Dates: start: 20100429, end: 20100918
  16. ENALAPRIL MALEATE [Suspect]
     Dosage: CODE NOT BROKEN
     Route: 048
     Dates: start: 20110831, end: 20120103
  17. BLINDED NO TREATMENT RECEIVED [Suspect]
     Indication: CARDIAC FAILURE
     Dosage: CODE NOT BROKEN
     Route: 048
     Dates: start: 20100429, end: 20100918
  18. SPIRONOLACTONE [Suspect]
     Dosage: UNK
     Dates: start: 20110429
  19. ACENOCOUMAROL [Concomitant]
     Indication: ATRIAL FIBRILLATION
     Dosage: UNK
     Dates: start: 20030722
  20. RAMIPRIL [Suspect]
     Dosage: UNK
     Dates: start: 20110429
  21. GLICLAZIDE [Concomitant]
     Dosage: UNK
     Dates: start: 20080101

REACTIONS (4)
  - CONCOMITANT DISEASE PROGRESSION [None]
  - HYPERKALAEMIA [None]
  - PNEUMONIA [None]
  - BRADYARRHYTHMIA [None]
